FAERS Safety Report 8912783 (Version 1)
Quarter: 2012Q4

REPORT INFORMATION
  Report Type: 
  Country: US (occurrence: US)
  Receive Date: 20121116
  Receipt Date: 20121116
  Transmission Date: 20130627
  Serious: Yes (Hospitalization, Other)
  Sender: FDA-Public Use
  Company Number: US-ROCHE-1153243

PATIENT
  Age: 62 Year
  Sex: Male
  Weight: 116.68 kg

DRUGS (7)
  1. PEGASYS [Suspect]
     Indication: HEPATITIS C
     Route: 048
     Dates: start: 20120316
  2. RIBAVIRIN [Suspect]
     Indication: HEPATITIS C
     Route: 048
     Dates: start: 20120316
  3. ACIPHEX [Concomitant]
     Indication: GASTROOESOPHAGEAL REFLUX DISEASE
     Route: 048
  4. RAPAFLO [Concomitant]
     Route: 048
  5. JANUVIA [Concomitant]
     Indication: DIABETES MELLITUS
     Route: 048
  6. NEURONTIN [Concomitant]
     Route: 048
  7. MONOPRIL [Concomitant]
     Route: 048

REACTIONS (3)
  - Pulmonary embolism [Recovering/Resolving]
  - Deep vein thrombosis [Recovering/Resolving]
  - Pneumonia [Recovering/Resolving]
